FAERS Safety Report 8971170 (Version 1)
Quarter: 2012Q4

REPORT INFORMATION
  Report Type: Report from Study
  Country: CA (occurrence: CA)
  Receive Date: 20121218
  Receipt Date: 20121218
  Transmission Date: 20130627
  Serious: Yes (Hospitalization)
  Sender: FDA-Public Use
  Company Number: CA-ASTELLAS-2012US012146

PATIENT
  Age: 45 Year
  Sex: Male
  Weight: 85 kg

DRUGS (92)
  1. TACROLIMUS CAPSULES [Suspect]
     Indication: RENAL TRANSPLANT
     Dosage: UNK
     Route: 065
  2. DACLIZUMAB [Suspect]
     Indication: RENAL TRANSPLANT
     Dosage: 100 mg, UID/QD
     Route: 042
     Dates: start: 20040922
  3. DACLIZUMAB [Suspect]
     Dosage: 100 mg, UID/QD
     Route: 042
     Dates: start: 20041206
  4. MYCOPHENOLATE MOFETIL [Suspect]
     Indication: RENAL TRANSPLANT
     Dosage: 1000 mg, UID/QD
     Route: 048
     Dates: start: 20040827, end: 20040827
  5. MYCOPHENOLATE MOFETIL [Suspect]
     Dosage: 1500 mg, bid
     Route: 048
     Dates: start: 20040828
  6. MYCOPHENOLATE MOFETIL [Suspect]
     Dosage: 1500 mg, UID/QD
     Route: 048
     Dates: start: 20040830, end: 20040830
  7. MYCOPHENOLATE MOFETIL [Suspect]
     Dosage: 1000 mg, UID/QD
     Route: 048
     Dates: start: 20040906, end: 20040906
  8. MYCOPHENOLATE MOFETIL [Suspect]
     Dosage: 1000 mg, bid
     Route: 048
     Dates: start: 20040907
  9. MYCOPHENOLATE MOFETIL [Suspect]
     Dosage: 1125 mg, bid
     Route: 048
     Dates: start: 20040915, end: 20040915
  10. MYCOPHENOLATE MOFETIL [Suspect]
     Dosage: 1250 mg, bid
     Route: 048
     Dates: start: 20040916, end: 20040916
  11. MYCOPHENOLATE MOFETIL [Suspect]
     Dosage: 1125 mg, bid
     Route: 048
     Dates: start: 20040917, end: 20040917
  12. MYCOPHENOLATE MOFETIL [Suspect]
     Dosage: 875 mg, bid
     Route: 048
     Dates: start: 20040918, end: 20040918
  13. MYCOPHENOLATE MOFETIL [Suspect]
     Dosage: 750 mg, UID/QD
     Route: 048
     Dates: start: 20040919
  14. MYCOPHENOLATE MOFETIL [Suspect]
     Dosage: 1000 mg, bid
     Route: 048
     Dates: start: 20040925
  15. MYCOPHENOLATE MOFETIL [Suspect]
     Dosage: 100 mg, UID/QD
     Route: 048
     Dates: start: 20041129
  16. MYCOPHENOLATE MOFETIL [Suspect]
     Dosage: 250 mg, UID/QD
     Route: 048
     Dates: start: 20041222, end: 20041222
  17. MYCOPHENOLATE MOFETIL [Suspect]
     Dosage: 250 mg, bid
     Route: 048
     Dates: start: 20041223
  18. MYCOPHENOLATE MOFETIL [Suspect]
     Dosage: 500 mg, bid
     Route: 048
     Dates: start: 20050107
  19. MYCOPHENOLATE MOFETIL [Suspect]
     Dosage: 625 mg, bid
     Route: 048
     Dates: start: 20050128
  20. MYCOPHENOLATE MOFETIL [Suspect]
     Dosage: 1000 mg, bid
     Route: 048
     Dates: start: 20050218
  21. MYCOPHENOLATE MOFETIL [Suspect]
     Indication: RENAL TRANSPLANT
     Dosage: 1000 mg, bid
     Route: 050
     Dates: start: 20040831, end: 20040831
  22. MYCOPHENOLATE MOFETIL [Suspect]
     Dosage: 750 mg, UID/QD
     Route: 050
     Dates: start: 20040901, end: 20010901
  23. MYCOPHENOLATE MOFETIL [Suspect]
     Indication: RENAL TRANSPLANT
     Dosage: 750 mg, UID/QD
     Route: 042
     Dates: start: 20040901, end: 20040901
  24. MYCOPHENOLATE MOFETIL [Suspect]
     Dosage: 750 mg, bid
     Route: 042
     Dates: start: 20040902
  25. MYCOPHENOLATE MOFETIL [Suspect]
     Dosage: 875 mg, bid
     Route: 042
     Dates: start: 20040905, end: 20040905
  26. MYCOPHENOLATE MOFETIL [Suspect]
     Dosage: 1000 mg, UID/QD
     Route: 042
     Dates: start: 20040906, end: 20040906
  27. CICLOSPORIN [Suspect]
     Indication: RENAL TRANSPLANT
     Dosage: 375 mg, UID/QD
     Route: 048
     Dates: start: 20040827, end: 20040830
  28. CICLOSPORIN [Suspect]
     Dosage: 287.5 mg, bid
     Route: 048
     Dates: start: 20040904, end: 20040904
  29. CICLOSPORIN [Suspect]
     Dosage: 187.5 mg, bid
     Route: 048
     Dates: start: 20040905, end: 20040905
  30. CICLOSPORIN [Suspect]
     Dosage: 137.5 mg, bid
     Route: 048
     Dates: start: 20041005
  31. CICLOSPORIN [Suspect]
     Dosage: 143.75 mg, bid
     Route: 048
     Dates: start: 20041109
  32. CICLOSPORIN [Suspect]
     Dosage: 162.5 mg, bid
     Route: 048
     Dates: start: 20041203
  33. CICLOSPORIN [Suspect]
     Dosage: 137.5 mg, bid
     Route: 048
     Dates: start: 20050315
  34. CICLOSPORIN [Suspect]
     Dosage: 131.25 mg, bid
     Route: 048
     Dates: start: 20051220
  35. CICLOSPORIN [Suspect]
     Dosage: 125 mg, bid
     Route: 048
     Dates: start: 20060112
  36. CICLOSPORIN [Suspect]
     Dosage: 112.5 mg, bid
     Route: 048
     Dates: start: 20060303
  37. CICLOSPORIN [Suspect]
     Dosage: 87.5 mg, bid
     Route: 048
     Dates: start: 20060601
  38. CICLOSPORIN [Suspect]
     Dosage: 75 mg, bid
     Route: 048
     Dates: start: 20070306
  39. CICLOSPORIN [Suspect]
     Indication: RENAL TRANSPLANT
     Dosage: 325 mg, UID/QD
     Route: 050
     Dates: start: 20040831, end: 20040831
  40. CICLOSPORIN [Suspect]
     Dosage: 300 mg, UID/QD
     Route: 050
     Dates: start: 20040901, end: 20040903
  41. CICLOSPORIN [Suspect]
     Indication: RENAL TRANSPLANT
     Dosage: 300 mg, UID/QD
     Route: 048
     Dates: start: 20040903, end: 20040903
  42. SIROLIMUS [Suspect]
     Indication: RENAL TRANSPLANT
     Dosage: UNK
     Route: 065
  43. HYDROCORTISONE SODIUM SUCCINATE [Suspect]
     Indication: RENAL TRANSPLANT
     Dosage: 50 mg, UID/QD
     Route: 042
     Dates: start: 20041217
  44. METHYLPREDNISOLONE SODIUM SUCCINATE [Suspect]
     Indication: RENAL TRANSPLANT
     Dosage: 125 mg, UID/QD
     Route: 042
     Dates: start: 20040828, end: 20040828
  45. METHYLPREDNISOLONE SODIUM SUCCINATE [Suspect]
     Dosage: 100 mg, UID/QD
     Route: 042
     Dates: start: 20040829, end: 20040829
  46. METHYLPREDNISOLONE SODIUM SUCCINATE [Suspect]
     Dosage: 80 mg, UID/QD
     Route: 042
     Dates: start: 20040830, end: 20040830
  47. METHYLPREDNISOLONE SODIUM SUCCINATE [Suspect]
     Dosage: 60 mg, UID/QD
     Route: 042
     Dates: start: 20040831, end: 20040831
  48. METHYLPREDNISOLONE SODIUM SUCCINATE [Suspect]
     Dosage: 40 mg, UID/QD
     Route: 042
     Dates: start: 20040901, end: 20040901
  49. METHYLPREDNISOLONE SODIUM SUCCINATE [Suspect]
     Dosage: 35 mg, UID/QD
     Route: 042
     Dates: start: 20040902, end: 20040902
  50. METHYLPREDNISOLONE SODIUM SUCCINATE [Suspect]
     Dosage: 30 mg, UID/QD
     Route: 042
     Dates: start: 20040903
  51. METHYLPREDNISOLONE SODIUM SUCCINATE [Suspect]
     Dosage: 187.5 mg, bid
     Route: 042
     Dates: start: 20040914, end: 20040914
  52. METHYLPREDNISOLONE SODIUM SUCCINATE [Suspect]
     Dosage: 125 mg, bid
     Route: 042
     Dates: start: 20040915
  53. METHYLPREDNISOLONE SODIUM SUCCINATE [Suspect]
     Dosage: 125 mg, UID/QD
     Route: 042
     Dates: start: 20040917, end: 20040918
  54. PREDNISONE [Suspect]
     Indication: RENAL TRANSPLANT
     Dosage: 27.5 mg, UID/QD
     Route: 048
     Dates: start: 20040904, end: 20040904
  55. PREDNISONE [Suspect]
     Dosage: 25 mg, UID/QD
     Route: 048
     Dates: start: 20040905, end: 20040905
  56. PREDNISONE [Suspect]
     Dosage: 22.5 mg, UID/QD
     Route: 048
     Dates: start: 20040906, end: 20040906
  57. PREDNISONE [Suspect]
     Dosage: 10 mg, UID/QD
     Route: 048
     Dates: start: 20040907
  58. PREDNISONE [Suspect]
     Dosage: 5 mg, bid
     Route: 048
     Dates: start: 20041213
  59. PREDNISONE [Suspect]
     Dosage: 7.5 mg, bid
     Route: 048
     Dates: start: 20041214
  60. PREDNISONE [Suspect]
     Dosage: 10 mg, UID/QD
     Route: 048
     Dates: start: 20041218
  61. PREDNISONE [Suspect]
     Dosage: 7.5 mg, UID/QD
     Route: 048
     Dates: start: 20040315
  62. PREDNISONE [Suspect]
     Dosage: 5 mg, UID/QD
     Route: 048
     Dates: start: 20050719
  63. RISEDRONATE SODIUM [Concomitant]
     Indication: OSTEOPOROSIS
     Dosage: 35 mg, Weekly
     Route: 048
     Dates: start: 20040924
  64. ACEBUTOLOL HYDROCHLORIDE [Concomitant]
     Indication: HYPERTENSION
     Dosage: 100 mg, bid
     Route: 048
     Dates: start: 20040831
  65. SEPTRA [Concomitant]
     Indication: INFECTION PROPHYLAXIS
     Dosage: 80 mg twice weekly
     Route: 048
     Dates: start: 20040902, end: 20041129
  66. SEPTRA [Concomitant]
     Dosage: 80 mg twice weekly
     Route: 048
     Dates: start: 20041213, end: 20051129
  67. ENALAPRIL MALEATE [Concomitant]
     Indication: HYPERTENSION
     Dosage: 2.5 mg, bid
     Route: 048
     Dates: start: 20041102, end: 20041213
  68. ENALAPRIL MALEATE [Concomitant]
     Dosage: 2.5 mg, bid
     Route: 048
     Dates: start: 20050314
  69. ENALAPRIL MALEATE [Concomitant]
     Dosage: 3.75 mg, bid
     Route: 048
     Dates: start: 20050509
  70. CYANOCOBALAMIN [Concomitant]
     Indication: PRODUCT USED FOR UNKNOWN INDICATION
     Dosage: 100 ug, UID/QD
     Route: 058
     Dates: start: 20041004
  71. CYANOCOBALAMIN [Concomitant]
     Dosage: 1000 ug, Monthly
     Route: 058
     Dates: start: 20041011, end: 20060302
  72. ACETAMINOPHEN [Concomitant]
     Indication: PRODUCT USED FOR UNKNOWN INDICATION
     Dosage: 975 mg, prn
     Route: 048
     Dates: start: 20040902, end: 20040906
  73. ACETAMINOPHEN [Concomitant]
     Dosage: 500 mg, prn
     Route: 048
     Dates: start: 20061201, end: 20061216
  74. AMLODIPINE BESYLATE [Concomitant]
     Indication: PRODUCT USED FOR UNKNOWN INDICATION
     Dosage: 5 mg, UID/QD
     Route: 048
     Dates: start: 20040916, end: 20041101
  75. AMLODIPINE BESYLATE [Concomitant]
     Dosage: 2.5 mg, UID/QD
     Route: 048
     Dates: start: 20041216
  76. AMLODIPINE BESYLATE [Concomitant]
     Dosage: 7.5 mg, UID/QD
     Route: 048
     Dates: start: 20050121
  77. AMLODIPINE BESYLATE [Concomitant]
     Dosage: 5 mg, UID/QD
     Route: 048
     Dates: start: 20050315
  78. CLONAZEPAM [Concomitant]
     Indication: PRODUCT USED FOR UNKNOWN INDICATION
     Dosage: 2 mg, UID/QD
     Route: 048
     Dates: start: 20040829
  79. DIMENHYDRINATE [Concomitant]
     Indication: PRODUCT USED FOR UNKNOWN INDICATION
     Dosage: 50 mg, UID/QD
     Route: 042
     Dates: start: 20040830, end: 20040830
  80. DIMENHYDRINATE [Concomitant]
     Dosage: 100 mg, UID/QD
     Route: 042
     Dates: start: 20040831
  81. FOLIC ACID [Concomitant]
     Indication: PRODUCT USED FOR UNKNOWN INDICATION
     Dosage: 5 mg, UID/QD
     Route: 048
     Dates: start: 20041129
  82. FUROSEMIDE [Concomitant]
     Indication: PRODUCT USED FOR UNKNOWN INDICATION
     Dosage: 80 mg, UID/QD
     Route: 042
     Dates: start: 20040828, end: 20040828
  83. FUROSEMIDE [Concomitant]
     Dosage: 40 mg, UID/QD
     Route: 042
     Dates: start: 20040829
  84. LORAZEPAM [Concomitant]
     Indication: PRODUCT USED FOR UNKNOWN INDICATION
     Dosage: 1 mg, prn
     Route: 048
     Dates: start: 20040831
  85. MAGNESIUM SULFATE [Concomitant]
     Indication: PRODUCT USED FOR UNKNOWN INDICATION
     Dosage: 2 g, UID/QD
     Route: 042
     Dates: start: 20040913
  86. MYCOSTATIN [Concomitant]
     Indication: PRODUCT USED FOR UNKNOWN INDICATION
     Dosage: 5 ml, qid
     Route: 048
     Dates: start: 20040828, end: 20041229
  87. RANITIDINE HYDROCHLORIDE [Concomitant]
     Indication: PRODUCT USED FOR UNKNOWN INDICATION
     Dosage: 150 mg, UID/QD
     Route: 048
     Dates: start: 20040903, end: 20060302
  88. SODIUM ACID PHOSPHATE              /01318702/ [Concomitant]
     Indication: PRODUCT USED FOR UNKNOWN INDICATION
     Dosage: 500 mg, bid
     Route: 048
     Dates: start: 20040920
  89. SODIUM POLYSTYRENE SULFONATE [Concomitant]
     Indication: PRODUCT USED FOR UNKNOWN INDICATION
     Dosage: 30 g, UID/QD
     Route: 048
     Dates: start: 20040828
  90. SODIUM POLYSTYRENE SULFONATE [Concomitant]
     Dosage: 15 g, UID/QD
     Route: 048
     Dates: start: 20040912
  91. SODIUM POLYSTYRENE SULFONATE [Concomitant]
     Dosage: 15 g, UID/QD
     Route: 048
     Dates: start: 20040915
  92. SODIUM POLYSTYRENE SULFONATE [Concomitant]
     Dosage: 15 g, UID/QD
     Route: 048
     Dates: start: 20040920

REACTIONS (4)
  - Lymphocele [Not Recovered/Not Resolved]
  - Ureteric stenosis [Recovered/Resolved]
  - Hydronephrosis [Recovered/Resolved]
  - Leukopenia [Not Recovered/Not Resolved]
